FAERS Safety Report 9523777 (Version 1)
Quarter: 2013Q3

REPORT INFORMATION
  Report Type: Spontaneous
  Country: US (occurrence: None)
  Receive Date: 20130912
  Receipt Date: 20130912
  Transmission Date: 20140515
  Serious: Yes (Life-Threatening, Hospitalization)
  Sender: FDA-Public Use
  Company Number: None

PATIENT
  Age: 63 Year
  Sex: Male
  Weight: 105.9 kg

DRUGS (1)
  1. WARFARIN [Suspect]
     Indication: ATRIAL FIBRILLATION
     Dosage: 12.5 MG  EVERY DAY  PO
     Route: 048
     Dates: start: 20121018, end: 20130715

REACTIONS (5)
  - Blood urine present [None]
  - Epistaxis [None]
  - Spinal haematoma [None]
  - Fall [None]
  - International normalised ratio increased [None]
